FAERS Safety Report 4816420-7 (Version None)
Quarter: 2005Q4

REPORT INFORMATION
  Report Type: 
  Country: None (occurrence: None)
  Receive Date: 20051028
  Receipt Date: 20051021
  Transmission Date: 20060501
  Serious: Yes (Death, Hospitalization)
  Sender: FDA-Public Use
  Company Number: 2005P1000254

PATIENT
  Age: 51 Year
  Sex: Male
  Weight: 92 kg

DRUGS (14)
  1. RETEPLASE (RETEPLASE) [Suspect]
     Indication: ACUTE MYOCARDIAL INFARCTION
     Dosage: IV
     Dates: start: 20050318
  2. ABCIXIMAB (ABCIXIMAB) [Suspect]
     Indication: ACUTE MYOCARDIAL INFARCTION
     Dosage: IV
     Route: 030
     Dates: start: 20050318
  3. ATENOLOL [Concomitant]
  4. LISINOPRIL [Concomitant]
  5. ISOSORBIDE MONONITRATE [Concomitant]
  6. NICORANDIL [Concomitant]
  7. DOXAZOSIN [Concomitant]
  8. ROSUVASTATIN [Concomitant]
  9. EZETIMBE [Concomitant]
  10. ASPIRIN [Concomitant]
  11. CLOPIDOGREL BISULFATE [Concomitant]
  12. FUROSEMIDE [Concomitant]
  13. FENOFIBRATE [Concomitant]
  14. LANSOPRAZOLE [Concomitant]

REACTIONS (11)
  - COUGH [None]
  - FALL [None]
  - HAEMOPTYSIS [None]
  - INCREASED UPPER AIRWAY SECRETION [None]
  - LOWER RESPIRATORY TRACT INFECTION [None]
  - MYOCARDIAL INFARCTION [None]
  - PYREXIA [None]
  - RENAL IMPAIRMENT [None]
  - SPUTUM CULTURE POSITIVE [None]
  - STAPHYLOCOCCAL INFECTION [None]
  - VENTRICULAR FIBRILLATION [None]
